FAERS Safety Report 8756930 (Version 1)
Quarter: 2012Q4

REPORT INFORMATION
  Report Type: 
  Country: US (occurrence: US)
  Receive Date: 20120828
  Receipt Date: 20120828
  Transmission Date: 20130627
  Serious: Yes (Hospitalization)
  Sender: FDA-Public Use
  Company Number: US-BAYER-2012-086673

PATIENT
  Age: 38 Year
  Sex: Female
  Weight: 83.9 kg

DRUGS (7)
  1. YAZ [Suspect]
     Indication: CONTRACEPTION
  2. PHENTERMINE [Concomitant]
     Dosage: 37.5 mg, UNK
     Dates: start: 20110421
  3. AUGMENTIN [Concomitant]
     Dosage: 500 mg, UNK
     Dates: start: 20110607
  4. CARISOPRODOL [Concomitant]
     Dosage: 350 mg, UNK
     Dates: start: 20110610
  5. NAPROSYN [Concomitant]
     Indication: CELLULITIS
     Dosage: 500 mg, 1 tab 2 times a day for 14 days
     Route: 048
     Dates: start: 20110609, end: 20110622
  6. SOMA [Concomitant]
     Indication: CELLULITIS
     Dosage: 350 mg, 1 tab 2 times a day for 15 days
     Dates: start: 20110609, end: 20110623
  7. DOXYCYCLINE [Concomitant]
     Dosage: 40 mg, UNK
     Dates: start: 20110512

REACTIONS (1)
  - Deep vein thrombosis [None]
